FAERS Safety Report 11003921 (Version 1)
Quarter: 2015Q2

REPORT INFORMATION
  Report Type: Spontaneous
  Country: US (occurrence: US)
  Receive Date: 20150409
  Receipt Date: 20150409
  Transmission Date: 20150821
  Serious: Yes (Death)
  Sender: FDA-Public Use
  Company Number: US-JNJFOC-20150403883

PATIENT
  Age: 87 Year
  Sex: Female
  Weight: 36.29 kg

DRUGS (3)
  1. TYLENOL EXTRA STRENGTH [Suspect]
     Active Substance: ACETAMINOPHEN
     Route: 048
  2. TYLENOL EXTRA STRENGTH [Suspect]
     Active Substance: ACETAMINOPHEN
     Indication: PAIN
     Dosage: 2 GELS EVERY 4 HOURS
     Route: 048
     Dates: end: 20140129
  3. XARELTO [Concomitant]
     Active Substance: RIVAROXABAN
     Indication: CARDIAC DISORDER
     Route: 065

REACTIONS (2)
  - Product quality issue [None]
  - Death [Fatal]

NARRATIVE: CASE EVENT DATE: 20140129
